FAERS Safety Report 5310532-X (Version None)
Quarter: 2007Q2

REPORT INFORMATION
  Report Type: 
  Country: None (occurrence: None)
  Receive Date: 20070427
  Receipt Date: 20070420
  Transmission Date: 20071010
  Serious: Yes (Disabling)
  Sender: FDA-Public Use
  Company Number: DE-MERCK-0704DEU00026

PATIENT
  Age: 63 Year
  Sex: Male

DRUGS (4)
  1. PROSCAR [Suspect]
     Indication: PROSTATIC ADENOMA
     Route: 048
     Dates: start: 20050127, end: 20070223
  2. PROSCAR [Suspect]
     Route: 048
     Dates: start: 20070224
  3. LEVOTHYROXINE SODIUM [Concomitant]
     Indication: AUTOIMMUNE THYROIDITIS
     Route: 048
     Dates: start: 20060729
  4. MAGNESIUM OXIDE [Concomitant]
     Indication: MUSCLE SPASMS
     Route: 048
     Dates: start: 20050101

REACTIONS (6)
  - ERECTILE DYSFUNCTION [None]
  - INAPPROPRIATE SCHEDULE OF DRUG ADMINISTRATION [None]
  - LIBIDO DECREASED [None]
  - PAINFUL ERECTION [None]
  - PENIS DISORDER [None]
  - SELF-MEDICATION [None]
